FAERS Safety Report 4792907-0 (Version None)
Quarter: 2005Q4

REPORT INFORMATION
  Report Type: 
  Country: None (occurrence: None)
  Receive Date: 20051010
  Receipt Date: 20050919
  Transmission Date: 20060501
  Serious: Yes (Other)
  Sender: FDA-Public Use
  Company Number: US-ROCHE-418459

PATIENT
  Age: 53 Year
  Sex: Female
  Weight: 80.3 kg

DRUGS (4)
  1. BONIVA [Suspect]
     Indication: OSTEOPOROSIS
     Route: 048
     Dates: start: 20050615
  2. CALCIUM GLUCONATE [Concomitant]
  3. MULTIVITAMIN NOS [Concomitant]
  4. PAXIL [Concomitant]

REACTIONS (2)
  - BONE PAIN [None]
  - LEUKOCYTOCLASTIC VASCULITIS [None]
